FAERS Safety Report 7894430-3 (Version None)
Quarter: 2011Q4

REPORT INFORMATION
  Report Type: 
  Country: None (occurrence: None)
  Receive Date: 20111104
  Receipt Date: 20111031
  Transmission Date: 20120403
  Serious: Yes (Death, Hospitalization, Other)
  Sender: FDA-Public Use
  Company Number: US-ASTRAZENECA-2011SE65578

PATIENT
  Sex: Female

DRUGS (1)
  1. CRESTOR [Suspect]
     Route: 048

REACTIONS (5)
  - PLEURAL EFFUSION [None]
  - MALAISE [None]
  - HEPATIC FAILURE [None]
  - RHABDOMYOLYSIS [None]
  - CHRONIC OBSTRUCTIVE PULMONARY DISEASE [None]
